FAERS Safety Report 8850663 (Version 8)
Quarter: 2014Q1

REPORT INFORMATION
  Report Type: Report from Study
  Country: IT (occurrence: IT)
  Receive Date: 20121019
  Receipt Date: 20140214
  Transmission Date: 20141002
  Serious: Yes (Other)
  Sender: FDA-Public Use
  Company Number: IT-ROCHE-1145408

PATIENT
  Age: 68 Year
  Sex: Female
  Weight: 47 kg

DRUGS (13)
  1. VISMODEGIB [Suspect]
     Indication: BASAL CELL CARCINOMA
     Dosage: DATE OF LAST DOSE PRIOR TO SAE ONSET: 05/SEP/2012.
     Route: 048
     Dates: start: 20120215, end: 20120904
  2. VISMODEGIB [Suspect]
     Route: 065
     Dates: start: 20121031
  3. LOPRESOR [Concomitant]
     Indication: HYPERTENSION
     Route: 065
     Dates: start: 200809
  4. OMEPRAZOLO [Concomitant]
     Route: 065
     Dates: start: 20120208
  5. FRISIUM [Concomitant]
     Indication: ANXIETY
     Route: 065
     Dates: start: 201201, end: 20120821
  6. KEPPRA [Concomitant]
     Indication: EPILEPSY
     Route: 065
     Dates: start: 20120104
  7. FUROSEMIDE [Concomitant]
     Indication: HYPERKALAEMIA
     Route: 065
     Dates: start: 20120510
  8. ROCEPHIN [Concomitant]
     Indication: MENINGITIS
     Route: 065
     Dates: start: 20120104, end: 20120222
  9. FERROGRAD [Concomitant]
     Indication: IRON DEFICIENCY ANAEMIA
     Route: 065
     Dates: start: 20120208, end: 20120327
  10. METRONIDAZOLE [Concomitant]
     Indication: MENINGITIS
     Route: 065
     Dates: start: 20120110, end: 20120214
  11. GENTALYN BETA [Concomitant]
     Indication: PRURITUS
     Route: 065
     Dates: start: 20120606, end: 20120703
  12. GENTALYN BETA [Concomitant]
     Route: 065
     Dates: start: 20120801
  13. CIPROFLOXACIN [Concomitant]
     Route: 065
     Dates: start: 20120802, end: 20120808

REACTIONS (1)
  - Rash [Recovered/Resolved]
